FAERS Safety Report 6418403-2 (Version None)
Quarter: 2009Q4

REPORT INFORMATION
  Report Type: 
  Country: None (occurrence: None)
  Receive Date: 20091026
  Receipt Date: 20091013
  Transmission Date: 20100525
  Serious: Yes (Life-Threatening, Hospitalization)
  Sender: FDA-Public Use
  Company Number: ADR37502009

PATIENT
  Age: 74 Year
  Sex: Male

DRUGS (6)
  1. SIMVASTATIN [Suspect]
     Indication: CARDIOVASCULAR EVENT PROPHYLAXIS
     Dosage: 80 MG, ORAL
     Route: 048
     Dates: start: 20071029
  2. ATENOLOL [Concomitant]
  3. ATORVASTATIN [Concomitant]
  4. BENDROFLUMETHIAZIDE [Concomitant]
  5. CHLORMADINONE ACETATE TAB [Concomitant]
  6. GOSERELIN [Concomitant]

REACTIONS (3)
  - GLOMERULAR FILTRATION RATE DECREASED [None]
  - HAEMATURIA [None]
  - RHABDOMYOLYSIS [None]
